FAERS Safety Report 12086161 (Version 1)
Quarter: 2016Q1

REPORT INFORMATION
  Report Type: Other
  Country: US (occurrence: US)
  Receive Date: 20160217
  Receipt Date: 20160217
  Transmission Date: 20160526
  Serious: Yes (Other)
  Sender: FDA-Public Use
  Company Number: US-DEP_13598_2016

PATIENT
  Age: 32 Year
  Sex: Female
  Weight: 47 kg

DRUGS (4)
  1. BUPROPION. [Concomitant]
     Active Substance: BUPROPION
     Indication: DEPRESSION
     Route: 048
     Dates: start: 201501
  2. LAMICTAL [Concomitant]
     Active Substance: LAMOTRIGINE
     Indication: BIPOLAR DISORDER
     Route: 048
     Dates: start: 2006
  3. NORTREL 1/35 [Concomitant]
     Indication: CONTRACEPTION
     Dosage: 1 DF, ONCE DAILY
     Route: 048
     Dates: start: 2001
  4. NUCYNTA [Suspect]
     Active Substance: TAPENTADOL HYDROCHLORIDE
     Indication: PAIN
     Route: 048
     Dates: start: 201510, end: 201601

REACTIONS (5)
  - Inappropriate schedule of drug administration [Recovered/Resolved]
  - Condition aggravated [Unknown]
  - Osteonecrosis [Unknown]
  - Drug dose titration not performed [Recovered/Resolved]
  - Arthropathy [Unknown]

NARRATIVE: CASE EVENT DATE: 2015
